FAERS Safety Report 5739794-1 (Version None)
Quarter: 2008Q2

REPORT INFORMATION
  Report Type: 
  Country: None (occurrence: None)
  Receive Date: 20080512
  Receipt Date: 20080512
  Transmission Date: 20081010
  Serious: Yes (Other)
  Sender: FDA-Public Use
  Company Number: None

PATIENT
  Age: 14 Year
  Sex: Female

DRUGS (1)
  1. AMITRIPTLINE HCL [Suspect]
     Indication: HEADACHE
     Dosage: 50 MG NIGHTLY PO
     Route: 048

REACTIONS (1)
  - SUICIDAL IDEATION [None]
